FAERS Safety Report 23766606 (Version 1)
Quarter: 2024Q2

REPORT INFORMATION
  Report Type: Spontaneous
  Country: US (occurrence: US)
  Receive Date: 20240422
  Receipt Date: 20240422
  Transmission Date: 20240716
  Serious: No
  Sender: FDA-Public Use
  Company Number: US-BIOVITRUM-2024-US-006034

PATIENT
  Age: 89 Year
  Sex: Female

DRUGS (1)
  1. VONJO [Suspect]
     Active Substance: PACRITINIB
     Indication: Chronic kidney disease
     Dosage: 200 MG, TWICE DAILY
     Route: 048

REACTIONS (2)
  - Red blood cell count decreased [Unknown]
  - Off label use [Unknown]
